FAERS Safety Report 23506488 (Version 1)
Quarter: 2024Q1

REPORT INFORMATION
  Report Type: Spontaneous
  Country: US (occurrence: US)
  Receive Date: 20240209
  Receipt Date: 20240209
  Transmission Date: 20240409
  Serious: No
  Sender: FDA-Public Use
  Company Number: US-NEBO-PC013111

PATIENT
  Age: 19 Year
  Sex: Female

DRUGS (1)
  1. MONOFERRIC [Suspect]
     Active Substance: FERRIC DERISOMALTOSE
     Indication: Product used for unknown indication
     Route: 050
     Dates: start: 2023

REACTIONS (4)
  - Pain in extremity [Unknown]
  - Contusion [Unknown]
  - Extravasation [Unknown]
  - Product administration error [Recovered/Resolved]

NARRATIVE: CASE EVENT DATE: 20230101
